FAERS Safety Report 19151479 (Version 2)
Quarter: 2023Q2

REPORT INFORMATION
  Report Type: Spontaneous
  Country: US (occurrence: US)
  Receive Date: 20210419
  Receipt Date: 20230515
  Transmission Date: 20230722
  Serious: No
  Sender: FDA-Public Use
  Company Number: US-UCBSA-2021003622

PATIENT
  Sex: Male

DRUGS (1)
  1. NEUPRO [Suspect]
     Active Substance: ROTIGOTINE
     Indication: Parkinson^s disease
     Dosage: 10 MILLIGRAM, ONCE DAILY (QD)
     Route: 062
     Dates: start: 202007

REACTIONS (2)
  - Application site erythema [Not Recovered/Not Resolved]
  - Off label use [Unknown]
